FAERS Safety Report 21133092 (Version 2)
Quarter: 2022Q3

REPORT INFORMATION
  Report Type: Other
  Country: US (occurrence: None)
  Receive Date: 20220726
  Receipt Date: 20220727
  Transmission Date: 20221026
  Serious: No
  Sender: FDA-Public Use
  Company Number: US-ROCHE-3146569

PATIENT
  Sex: Male

DRUGS (1)
  1. OCREVUS [Suspect]
     Active Substance: OCRELIZUMAB
     Indication: Relapsing multiple sclerosis
     Dosage: YES?INFUSE 300MG DAY 1 + DAY 15 INJECT 600 MG EVERY 6 MONTHS
     Route: 065
     Dates: start: 20171002

REACTIONS (1)
  - COVID-19 [Recovered/Resolved]
